FAERS Safety Report 9681984 (Version 1)
Quarter: 2013Q4

REPORT INFORMATION
  Report Type: Spontaneous
  Country: US (occurrence: US)
  Receive Date: 20131111
  Receipt Date: 20131111
  Transmission Date: 20140711
  Serious: Yes (Other)
  Sender: FDA-Public Use
  Company Number: US-PFIZER INC-2013321071

PATIENT
  Sex: Female

DRUGS (2)
  1. CHANTIX [Suspect]
     Indication: SMOKING CESSATION THERAPY
     Dosage: UNK
     Dates: start: 2003
  2. CHANTIX [Suspect]
     Dosage: UNK
     Dates: start: 201310

REACTIONS (6)
  - Gastrointestinal disorder [Unknown]
  - Local swelling [Unknown]
  - Skin exfoliation [Unknown]
  - Dehydration [Unknown]
  - Rash [Unknown]
  - Breast disorder [Unknown]
